FAERS Safety Report 8402457-8 (Version None)
Quarter: 2012Q1

REPORT INFORMATION
  Report Type: 
  Country: None (occurrence: None)
  Receive Date: 20120323
  Receipt Date: 20110428
  Transmission Date: 20120608
  Serious: Yes (Hospitalization, Other)
  Sender: FDA-Public Use
  Company Number: 163-21880-11011293

PATIENT
  Age: 75 Year
  Sex: Female
  Weight: 86.637 kg

DRUGS (12)
  1. PROMETHAZINE [Concomitant]
  2. METOCLOPRAMIDE [Concomitant]
  3. IMODIUM [Concomitant]
  4. ACIDOPHILUS [Concomitant]
  5. REVLIMID [Suspect]
     Indication: MULTIPLE MYELOMA
     Dosage: 5 MG, 1 IN 1 D, PO 25 MG, 1 IN 1 D, PO
     Route: 048
     Dates: start: 20090529
  6. REVLIMID [Suspect]
     Indication: MULTIPLE MYELOMA
     Dosage: 5 MG, 1 IN 1 D, PO 25 MG, 1 IN 1 D, PO
     Route: 048
     Dates: start: 20090602, end: 20101231
  7. REVLIMID [Suspect]
     Indication: MULTIPLE MYELOMA
     Dosage: 5 MG, 1 IN 1 D, PO 25 MG, 1 IN 1 D, PO
     Route: 048
     Dates: start: 20110113
  8. ASPIRIN [Concomitant]
  9. DEXAMETHASONE [Concomitant]
  10. LISINOPRIL [Concomitant]
  11. TANDEM [Concomitant]
  12. METFFORMIN HYDROCHLORIDE [Concomitant]

REACTIONS (9)
  - DIVERTICULUM [None]
  - NODULE [None]
  - HAEMORRHAGE [None]
  - FATIGUE [None]
  - LOWER GASTROINTESTINAL HAEMORRHAGE [None]
  - ANORECTAL DISORDER [None]
  - VOMITING [None]
  - DIARRHOEA [None]
  - ANAEMIA [None]
